FAERS Safety Report 13081656 (Version 1)
Quarter: 2017Q1

REPORT INFORMATION
  Report Type: Spontaneous
  Country: US (occurrence: US)
  Receive Date: 20170103
  Receipt Date: 20170103
  Transmission Date: 20170428
  Serious: Yes (Other)
  Sender: FDA-Public Use
  Company Number: US-PFIZER INC-2016598659

PATIENT
  Age: 21 Year
  Sex: Female

DRUGS (2)
  1. XELJANZ XR [Suspect]
     Active Substance: TOFACITINIB CITRATE
     Indication: OSTEONECROSIS
  2. XELJANZ XR [Suspect]
     Active Substance: TOFACITINIB CITRATE
     Indication: MAST CELL ACTIVATION SYNDROME
     Dosage: 11 MG, 1X/DAY

REACTIONS (2)
  - Device related infection [Unknown]
  - Product use issue [Unknown]

NARRATIVE: CASE EVENT DATE: 201611
